FAERS Safety Report 8966200 (Version 2)
Quarter: 2013Q1

REPORT INFORMATION
  Report Type: Spontaneous
  Country: US (occurrence: US)
  Receive Date: 20121217
  Receipt Date: 20130114
  Transmission Date: 20140127
  Serious: Yes (Hospitalization)
  Sender: FDA-Public Use
  Company Number: US-009507513-1212USA004904

PATIENT
  Sex: Male

DRUGS (4)
  1. SINGULAIR [Suspect]
     Route: 048
  2. DULERA [Concomitant]
  3. ADVAIR [Concomitant]
  4. SYMBICORT [Concomitant]

REACTIONS (3)
  - Pneumonia [Unknown]
  - Wheezing [Unknown]
  - Eye disorder [Unknown]
